FAERS Safety Report 16371996 (Version 2)
Quarter: 2019Q2

REPORT INFORMATION
  Report Type: Spontaneous
  Country: US (occurrence: US)
  Receive Date: 20190530
  Receipt Date: 20190613
  Transmission Date: 20190711
  Serious: Yes (Death)
  Sender: FDA-Public Use
  Company Number: US-JNJFOC-20190538228

PATIENT
  Age: 59 Year
  Sex: Male
  Weight: 128.37 kg

DRUGS (15)
  1. METOPROLOL. [Concomitant]
     Active Substance: METOPROLOL
  2. VASOTEC [Concomitant]
     Active Substance: ENALAPRIL MALEATE
  3. HYDROCODONE [Concomitant]
     Active Substance: HYDROCODONE
  4. LASIX [Concomitant]
     Active Substance: FUROSEMIDE
  5. PANTOPRAZOLE [Concomitant]
     Active Substance: PANTOPRAZOLE
  6. COUMADIN [Concomitant]
     Active Substance: WARFARIN SODIUM
  7. CITALOPRAM [Concomitant]
     Active Substance: CITALOPRAM HYDROBROMIDE
  8. PROPAFENONE. [Concomitant]
     Active Substance: PROPAFENONE
  9. LIPITOR [Concomitant]
     Active Substance: ATORVASTATIN CALCIUM
  10. TRIAMCINOLONE [Concomitant]
     Active Substance: TRIAMCINOLONE
     Indication: PSORIASIS
  11. METFORMIN [Concomitant]
     Active Substance: METFORMIN HYDROCHLORIDE
  12. WELLBUTRIN [Concomitant]
     Active Substance: BUPROPION HYDROCHLORIDE
  13. STELARA [Concomitant]
     Active Substance: USTEKINUMAB
  14. TREMFYA [Suspect]
     Active Substance: GUSELKUMAB
     Indication: PSORIASIS
     Route: 065
     Dates: start: 20190401, end: 20190401
  15. RESTORIL [Concomitant]
     Active Substance: TEMAZEPAM

REACTIONS (2)
  - Cardiac arrest [Fatal]
  - Septic shock [Fatal]

NARRATIVE: CASE EVENT DATE: 20190502
